FAERS Safety Report 19940582 (Version 2)
Quarter: 2021Q4

REPORT INFORMATION
  Report Type: Spontaneous
  Country: US (occurrence: US)
  Receive Date: 20211011
  Receipt Date: 20211220
  Transmission Date: 20220303
  Serious: Yes (Other)
  Sender: FDA-Public Use
  Company Number: US-JNJFOC-20211001464

PATIENT
  Age: 46 Year
  Sex: Female
  Weight: 59.020 kg

DRUGS (1)
  1. STELARA [Suspect]
     Active Substance: USTEKINUMAB
     Indication: Crohn^s disease
     Route: 042
     Dates: start: 20210927

REACTIONS (10)
  - Anaphylactic shock [Recovering/Resolving]
  - Infusion related reaction [Recovering/Resolving]
  - Blood pressure increased [Unknown]
  - Burning sensation [Unknown]
  - Panic attack [Unknown]
  - Muscular weakness [Unknown]
  - Decreased appetite [Unknown]
  - Anxiety [Unknown]
  - Influenza like illness [Unknown]
  - Depression [Unknown]

NARRATIVE: CASE EVENT DATE: 20210901
